FAERS Safety Report 21833162 (Version 2)
Quarter: 2023Q1

REPORT INFORMATION
  Report Type: Spontaneous
  Country: None (occurrence: DE)
  Receive Date: 20230106
  Receipt Date: 20230119
  Transmission Date: 20230418
  Serious: Yes (Hospitalization, Other)
  Sender: FDA-Public Use
  Company Number: DE-Nova Laboratories Limited-2136514

PATIENT
  Age: 70 Year
  Sex: Male
  Weight: 61 kg

DRUGS (20)
  1. PURIXAN [Suspect]
     Active Substance: MERCAPTOPURINE
     Indication: Cholangitis sclerosing
     Route: 048
  2. BUDESONIDE [Suspect]
     Active Substance: BUDESONIDE
     Route: 048
  3. MERCAPTOPURINE [Suspect]
     Active Substance: MERCAPTOPURINE
     Route: 048
  4. PREDNISOLONE [Suspect]
     Active Substance: PREDNISOLONE
     Route: 048
  5. ASPIRIN [Concomitant]
     Active Substance: ASPIRIN
  6. VITAMIN D NOS [Concomitant]
     Active Substance: VITAMIN D NOS
  7. CALCIUM [Concomitant]
     Active Substance: CALCIUM
  8. INSULIN DETEMIR [Concomitant]
     Active Substance: INSULIN DETEMIR
  9. ASPIRIN [Concomitant]
     Active Substance: ASPIRIN
  10. INSULIN ACTRAPID HM (INSULIN HUMAN) [Concomitant]
  11. PANTOPRAZOLE [Concomitant]
     Active Substance: PANTOPRAZOLE
  12. METOPROLOL [Concomitant]
     Active Substance: METOPROLOL
  13. BUDESONIDE [Suspect]
     Active Substance: BUDESONIDE
     Route: 048
  14. BUDESONIDE [Suspect]
     Active Substance: BUDESONIDE
     Route: 048
  15. PREDNISOLONE [Suspect]
     Active Substance: PREDNISOLONE
     Route: 048
  16. PREDNISOLONE [Suspect]
     Active Substance: PREDNISOLONE
     Route: 048
  17. PREDNISOLONE [Suspect]
     Active Substance: PREDNISOLONE
     Route: 048
  18. PREDNISOLONE [Suspect]
     Active Substance: PREDNISOLONE
     Route: 048
  19. PREDNISOLONE [Suspect]
     Active Substance: PREDNISOLONE
     Route: 048
  20. PREDNISOLONE [Suspect]
     Active Substance: PREDNISOLONE
     Route: 048

REACTIONS (3)
  - Cholecystitis infective [Recovered/Resolved]
  - Drug-induced liver injury [Recovered/Resolved]
  - Off label use [None]
